FAERS Safety Report 25016572 (Version 1)
Quarter: 2025Q1

REPORT INFORMATION
  Report Type: Spontaneous
  Country: ES (occurrence: ES)
  Receive Date: 20250227
  Receipt Date: 20250227
  Transmission Date: 20250409
  Serious: Yes (Hospitalization)
  Sender: TEVA
  Company Number: None

PATIENT
  Age: 63 Year
  Sex: Male
  Weight: 110 kg

DRUGS (2)
  1. HYDROCHLOROTHIAZIDE\VALSARTAN [Interacting]
     Active Substance: HYDROCHLOROTHIAZIDE\VALSARTAN
     Indication: Hypertension
     Dosage: VALSARTAN + HYDROCHLOROTHIAZIDE
     Route: 048
     Dates: start: 2010, end: 20241216
  2. VANCOMYCIN [Interacting]
     Active Substance: VANCOMYCIN
     Indication: Osteomyelitis
     Route: 042
     Dates: start: 20241205, end: 20241216

REACTIONS (1)
  - Acute kidney injury [Recovered/Resolved]

NARRATIVE: CASE EVENT DATE: 20241216
